FAERS Safety Report 6272702-6 (Version None)
Quarter: 2009Q3

REPORT INFORMATION
  Report Type: 
  Country: None (occurrence: None)
  Receive Date: 20090716
  Receipt Date: 20090716
  Transmission Date: 20100115
  Serious: No
  Sender: FDA-Public Use
  Company Number: None

PATIENT

DRUGS (1)
  1. BOTOX [Suspect]
     Indication: MIGRAINE
     Dosage: 500 MG
     Dates: start: 20090108

REACTIONS (4)
  - BACK PAIN [None]
  - BONE PAIN [None]
  - MALAISE [None]
  - PAIN [None]
